FAERS Safety Report 16155685 (Version 1)
Quarter: 2019Q2

REPORT INFORMATION
  Report Type: Spontaneous
  Country: DE (occurrence: DE)
  Receive Date: 20190404
  Receipt Date: 20190404
  Transmission Date: 20190711
  Serious: Yes (Hospitalization)
  Sender: FDA-Public Use
  Company Number: DE-ROCHE-2295376

PATIENT
  Sex: Female

DRUGS (2)
  1. BONVIVA [Suspect]
     Active Substance: IBANDRONATE SODIUM
     Indication: OSTEOPOROSIS
     Route: 065
     Dates: start: 2014
  2. CORTISONE ACETATE. [Concomitant]
     Active Substance: CORTISONE ACETATE
     Indication: SYSTEMIC LUPUS ERYTHEMATOSUS
     Dosage: IN DER REGEL 5 MG
     Route: 048

REACTIONS (3)
  - Osteonecrosis of external auditory canal [Unknown]
  - Mastoiditis [Unknown]
  - Otitis media chronic [Unknown]

NARRATIVE: CASE EVENT DATE: 2014
